APPROVED DRUG PRODUCT: VIREAD
Active Ingredient: TENOFOVIR DISOPROXIL FUMARATE
Strength: 200MG
Dosage Form/Route: TABLET;ORAL
Application: N021356 | Product #003 | TE Code: AB
Applicant: GILEAD SCIENCES INC
Approved: Jan 18, 2012 | RLD: Yes | RS: No | Type: RX